FAERS Safety Report 4979069-1 (Version None)
Quarter: 2006Q2

REPORT INFORMATION
  Report Type: 
  Country: None (occurrence: None)
  Receive Date: 20060417
  Receipt Date: 20060404
  Transmission Date: 20061013
  Serious: Yes (Life-Threatening, Hospitalization, Other)
  Sender: FDA-Public Use
  Company Number: 2006-00762

PATIENT
  Sex: Male

DRUGS (1)
  1. VELCADE [Suspect]
     Indication: MULTIPLE MYELOMA
     Dosage: 4.80 MG,
     Dates: start: 20060404

REACTIONS (10)
  - ACCIDENTAL OVERDOSE [None]
  - DRUG TOXICITY [None]
  - HYPOTENSION [None]
  - INAPPROPRIATE SCHEDULE OF DRUG ADMINISTRATION [None]
  - LACTIC ACIDOSIS [None]
  - MYOCARDITIS [None]
  - RENAL FAILURE ACUTE [None]
  - RESPIRATORY DISORDER [None]
  - THROMBOCYTOPENIA [None]
  - TROPONIN INCREASED [None]
